FAERS Safety Report 10608719 (Version 2)
Quarter: 2015Q1

REPORT INFORMATION
  Report Type: Spontaneous
  Country: US (occurrence: US)
  Receive Date: 20141125
  Receipt Date: 20150331
  Transmission Date: 20150720
  Serious: Yes (Death, Hospitalization)
  Sender: FDA-Public Use
  Company Number: US-PFIZER INC-2014322326

PATIENT
  Age: 90 Year
  Sex: Female

DRUGS (5)
  1. REVATIO [Suspect]
     Active Substance: SILDENAFIL CITRATE
     Indication: CARDIAC FAILURE CONGESTIVE
     Dosage: 20 MG, 3X/DAY
     Dates: start: 2009, end: 20141114
  2. METOLAZONE. [Concomitant]
     Active Substance: METOLAZONE
     Dosage: 2.5
     Dates: start: 2012, end: 20141114
  3. AMIODARONE [Concomitant]
     Active Substance: AMIODARONE
     Dosage: 100 MG (1/2 OF 200 MG)
     Dates: start: 2009, end: 20141114
  4. KLOR-CON [Concomitant]
     Active Substance: POTASSIUM CHLORIDE
     Dosage: 20 MG, UNK
     Dates: start: 2009, end: 20141114
  5. FUROSEMIDE. [Concomitant]
     Active Substance: FUROSEMIDE
     Dosage: 40 MG, UNK
     Dates: start: 2009, end: 20141114

REACTIONS (2)
  - Cardiac failure [Fatal]
  - Product use issue [Unknown]

NARRATIVE: CASE EVENT DATE: 2009
